FAERS Safety Report 24027009 (Version 2)
Quarter: 2025Q2

REPORT INFORMATION
  Report Type: Spontaneous
  Country: CZ (occurrence: CZ)
  Receive Date: 20240628
  Receipt Date: 20250517
  Transmission Date: 20250716
  Serious: Yes (Other)
  Sender: AUROBINDO
  Company Number: CZ-AUROBINDO-AUR-APL-2024-030942

PATIENT
  Age: 5 Week
  Sex: Male

DRUGS (7)
  1. MOXIFLOXACIN [Suspect]
     Active Substance: MOXIFLOXACIN
     Indication: Mycobacterium abscessus infection
     Route: 065
  2. AMIKACIN [Suspect]
     Active Substance: AMIKACIN
     Indication: Mycobacterium abscessus infection
     Route: 065
  3. AZITHROMYCIN [Suspect]
     Active Substance: AZITHROMYCIN
     Indication: Mycobacterium abscessus infection
     Route: 065
  4. IMIPENEM [Suspect]
     Active Substance: IMIPENEM
     Indication: Mycobacterium abscessus infection
     Route: 065
  5. IVACAFTOR\LUMACAFTOR [Suspect]
     Active Substance: IVACAFTOR\LUMACAFTOR
     Indication: Mycobacterium abscessus infection
     Route: 065
  6. LINEZOLID [Suspect]
     Active Substance: LINEZOLID
     Indication: Mycobacterium abscessus infection
     Route: 065
  7. TOBRAMYCIN [Suspect]
     Active Substance: TOBRAMYCIN
     Indication: Mycobacterium abscessus infection

REACTIONS (1)
  - Drug ineffective [Unknown]
